FAERS Safety Report 5634165-0 (Version None)
Quarter: 2008Q1

REPORT INFORMATION
  Report Type: 
  Country: None (occurrence: None)
  Receive Date: 20080219
  Receipt Date: 20080211
  Transmission Date: 20080703
  Serious: Yes (Other)
  Sender: FDA-Public Use
  Company Number: 2008SP003060

PATIENT
  Age: 57 Year
  Sex: Female
  Weight: 80.85 kg

DRUGS (2)
  1. MOMETASONE FUROATE [Suspect]
     Indication: NASAL POLYPS
     Dosage: 100 MCG; QD; NAS
     Dates: start: 20080107, end: 20080114
  2. PARACETAMOL (CON.) [Concomitant]

REACTIONS (2)
  - EXTRASYSTOLES [None]
  - PALPITATIONS [None]
